FAERS Safety Report 25731893 (Version 1)
Quarter: 2025Q3

REPORT INFORMATION
  Report Type: Spontaneous
  Country: US (occurrence: US)
  Receive Date: 20250827
  Receipt Date: 20250827
  Transmission Date: 20251020
  Serious: No
  Sender: MERCK SHARP & DOHME LLC
  Company Number: US-009507513-2321166

PATIENT

DRUGS (1)
  1. LETERMOVIR [Suspect]
     Active Substance: LETERMOVIR
     Indication: Antiviral prophylaxis
     Dosage: PROPHYLAXIS DURATION PER PROTOCOL: 3 MONTHS?LETERMOVIR EXPOSURE: 87 DAYS
     Route: 048
     Dates: start: 2024

REACTIONS (1)
  - Off label use [Unknown]

NARRATIVE: CASE EVENT DATE: 20240101
